FAERS Safety Report 7606659 (Version 5)
Quarter: 2013Q1

REPORT INFORMATION
  Report Type: Report from Study
  Country: US (occurrence: US)
  Receive Date: 20100926
  Receipt Date: 20130110
  Transmission Date: 20140127
  Serious: Yes (Hospitalization)
  Sender: FDA-Public Use
  Company Number: PHHO2010US14174

PATIENT
  Age: 96 Year
  Sex: Female
  Weight: 61 kg

DRUGS (6)
  1. EXELON [Suspect]
     Indication: DEMENTIA ALZHEIMER^S TYPE
     Route: 062
     Dates: start: 20100904
  2. EXELON [Suspect]
     Dosage: 1 DF (15 CM^2), UNK
     Route: 062
     Dates: start: 20100104
  3. LISINOPRIL [Suspect]
     Indication: HYPERTENSION
  4. GLIPIZIDE [Concomitant]
     Indication: DIABETES MELLITUS
  5. LEXAPRO [Concomitant]
     Indication: DEPRESSION
  6. MIRTAZAPINE [Concomitant]
     Indication: DEPRESSION

REACTIONS (11)
  - Vertigo positional [Recovered/Resolved]
  - Dizziness [Recovered/Resolved]
  - Fall [Recovered/Resolved]
  - Skull fracture [Recovering/Resolving]
  - Laceration [Recovering/Resolving]
  - Headache [Recovered/Resolved]
  - Subarachnoid haemorrhage [Recovering/Resolving]
  - Pneumocephalus [Recovering/Resolving]
  - Haematoma [Recovering/Resolving]
  - Loss of consciousness [Recovered/Resolved]
  - Ear haemorrhage [Recovered/Resolved]
